FAERS Safety Report 18480989 (Version 2)
Quarter: 2020Q4

REPORT INFORMATION
  Report Type: Spontaneous
  Country: US (occurrence: US)
  Receive Date: 20201109
  Receipt Date: 20201217
  Transmission Date: 20210114
  Serious: No
  Sender: FDA-Public Use
  Company Number: US-ASTRAZENECA-2020SF38751

PATIENT
  Age: 676 Month
  Sex: Female
  Weight: 92.5 kg

DRUGS (4)
  1. LANTUS [Concomitant]
     Active Substance: INSULIN GLARGINE
  2. HUMALOG [Concomitant]
     Active Substance: INSULIN LISPRO
     Dosage: DOSE VARIES, THREE TIMES A DAY
  3. METFORMIN [Concomitant]
     Active Substance: METFORMIN HYDROCHLORIDE
  4. BYDUREON BCISE [Suspect]
     Active Substance: EXENATIDE
     Indication: DIABETES MELLITUS MANAGEMENT
     Route: 065
     Dates: start: 201911

REACTIONS (6)
  - Weight decreased [Unknown]
  - Device leakage [Unknown]
  - Device malfunction [Unknown]
  - Device delivery system issue [Unknown]
  - Intentional device misuse [Unknown]
  - Injection site mass [Unknown]

NARRATIVE: CASE EVENT DATE: 201911
